FAERS Safety Report 9409554 (Version 2)
Quarter: 2013Q4

REPORT INFORMATION
  Report Type: Spontaneous
  Country: US (occurrence: None)
  Receive Date: 20130716
  Receipt Date: 20131017
  Transmission Date: 20140711
  Serious: Yes (Other)
  Sender: FDA-Public Use
  Company Number: ACO_37226_2013

PATIENT
  Age: 61 Year
  Sex: Female
  Weight: 108.8 kg

DRUGS (20)
  1. AMPYRA [Suspect]
     Indication: GAIT DISTURBANCE
     Route: 048
     Dates: start: 201009
  2. LYRICA (PREGABALIN) [Concomitant]
  3. DEPAKOTE (VALPROATE SEMISODIUM) [Concomitant]
  4. CLOZAPINE (CLOZAPINE) [Concomitant]
  5. VITAMIN D (ERGOCALCIFEROL) [Concomitant]
  6. FUROSEMIDE (FUROSEMIDE) [Concomitant]
  7. FAMOTIDINE (FAMOTIDINE) [Concomitant]
  8. METOPROLOL (METOPROLOL TARTRATE) [Concomitant]
  9. PRAVASTATIN (PRAVASTATIN SODIUM) [Concomitant]
  10. ASPIRIN (ACETYLSALICYLIC ACID) [Concomitant]
  11. BACLOFEN (BACLOFEN) [Concomitant]
  12. TOVIAZ (FESOTERODINE FUMARATE) [Concomitant]
  13. TRAMADOL (TRAMADOL HYDROCHLORIDE) [Concomitant]
  14. CYMBALTA (DULOXETINE HYDROCHLORIDE) [Concomitant]
  15. LOVAZA (OMEGA-3-ACID ETHYL ESTER) [Concomitant]
  16. NAPROXEN (NAPROXEN SODIUM) [Concomitant]
  17. COLACE [Concomitant]
  18. VICODIN (HYDROCODONE BITARTRATE, PARACETAMOL) [Concomitant]
  19. LEVOTHYROXINE SODIUM (LEVOTHYROXINE SODIUM) [Concomitant]
  20. FIBER (POLYCARBOPHIL CALCIUM) [Concomitant]

REACTIONS (10)
  - Swollen tongue [None]
  - Oedema [None]
  - Glossodynia [None]
  - Migraine [None]
  - Muscular weakness [None]
  - Gait disturbance [None]
  - Pruritus [None]
  - Paraesthesia [None]
  - Back pain [None]
  - Insomnia [None]
